FAERS Safety Report 8718721 (Version 5)
Quarter: 2013Q1

REPORT INFORMATION
  Report Type: Spontaneous
  Country: US (occurrence: US)
  Receive Date: 20120810
  Receipt Date: 20130123
  Transmission Date: 20140127
  Serious: Yes (Other)
  Sender: FDA-Public Use
  Company Number: US-ASTRAZENECA-2011SE69253

PATIENT
  Age: 72 Year
  Sex: Female

DRUGS (2)
  1. ARIMIDEX [Suspect]
     Route: 048
  2. METFORMIN [Concomitant]

REACTIONS (6)
  - Neoplasm malignant [Unknown]
  - Nasopharyngitis [Unknown]
  - Sinus disorder [Unknown]
  - Thyroid disorder [Unknown]
  - Arthritis [Unknown]
  - Arthritis [Unknown]
